FAERS Safety Report 18039981 (Version 3)
Quarter: 2020Q3

REPORT INFORMATION
  Report Type: Report from Study
  Country: US (occurrence: US)
  Receive Date: 20200717
  Receipt Date: 20200803
  Transmission Date: 20201105
  Serious: Yes (Life-Threatening, Hospitalization)
  Sender: FDA-Public Use
  Company Number: US-DSJP-DSU-2020-116537

PATIENT

DRUGS (3)
  1. TRASTUZUMAB DERUXTECAN. [Suspect]
     Active Substance: TRASTUZUMAB DERUXTECAN
     Indication: NON-SMALL CELL LUNG CANCER METASTATIC
     Dosage: 6.4 MG/KG, ONCE EVERY 3 WK
     Route: 042
     Dates: start: 20200522, end: 20200522
  2. SODIUM CHLORIDE. [Concomitant]
     Active Substance: SODIUM CHLORIDE
     Indication: HYPONATRAEMIA
     Dosage: 2 G, TID
     Route: 048
     Dates: start: 20200517
  3. NORMAL SALINE [Concomitant]
     Active Substance: SODIUM CHLORIDE
     Indication: HYPONATRAEMIA
     Dosage: 1000 ML, CONTINUOUS
     Route: 042
     Dates: start: 20200517, end: 20200518

REACTIONS (4)
  - Pneumonia [Recovered/Resolved]
  - Pleural effusion [Recovered/Resolved]
  - Oedema peripheral [Recovered/Resolved]
  - Hypoxia [Recovered/Resolved]

NARRATIVE: CASE EVENT DATE: 20200609
